FAERS Safety Report 23833532 (Version 1)
Quarter: 2024Q2

REPORT INFORMATION
  Report Type: Spontaneous
  Country: IT (occurrence: IT)
  Receive Date: 20240508
  Receipt Date: 20240508
  Transmission Date: 20240716
  Serious: Yes (Hospitalization)
  Sender: FDA-Public Use
  Company Number: IT-SANDOZ-SDZ2024IT046264

PATIENT
  Age: 58 Year
  Sex: Male

DRUGS (2)
  1. ALPRAZOLAM [Suspect]
     Active Substance: ALPRAZOLAM
     Indication: Intentional self-injury
     Dosage: 13 MG, TAKING 13 TABLETS OF ALPRAZOLAM OF 1 MG
     Route: 048
     Dates: start: 20240313
  2. BROMAZEPAM [Suspect]
     Active Substance: BROMAZEPAM
     Indication: Intentional self-injury
     Dosage: 5 DROP, ASSUMPTION OF 2.5 MG/MLOF BROMAZEPAM
     Route: 048
     Dates: start: 20240313

REACTIONS (3)
  - Toxicity to various agents [Unknown]
  - Abdominal pain [Unknown]
  - Confusional state [Unknown]

NARRATIVE: CASE EVENT DATE: 20240313
